FAERS Safety Report 9503169 (Version 1)
Quarter: 2013Q3

REPORT INFORMATION
  Report Type: Spontaneous
  Country: US (occurrence: US)
  Receive Date: 20130906
  Receipt Date: 20130906
  Transmission Date: 20140515
  Serious: No
  Sender: FDA-Public Use
  Company Number: US-PFIZER INC-2013255919

PATIENT
  Age: 74 Year
  Sex: Male
  Weight: 82.54 kg

DRUGS (2)
  1. TESSALON [Suspect]
     Indication: COUGH
     Dosage: 100 MG, UNK
     Dates: start: 201307, end: 2013
  2. TESSALON [Suspect]
     Dosage: 200 MG,THREE TIMES A DAY
     Dates: start: 2013

REACTIONS (1)
  - Drug ineffective [Unknown]
